FAERS Safety Report 21179704 (Version 3)
Quarter: 2022Q3

REPORT INFORMATION
  Report Type: Report from Study
  Country: PK (occurrence: PK)
  Receive Date: 20220805
  Receipt Date: 20220823
  Transmission Date: 20221027
  Serious: Yes (Other)
  Sender: FDA-Public Use
  Company Number: PK-NOVARTISPH-NVSC2022PK173146

PATIENT
  Age: 54 Year
  Sex: Male

DRUGS (2)
  1. MYFORTIC [Suspect]
     Active Substance: MYCOPHENOLATE SODIUM
     Indication: Transplant
     Dosage: 3 DOSAGE FORM, QD (180 MG)
     Route: 048
     Dates: start: 20201028, end: 20220703
  2. MYFORTIC [Suspect]
     Active Substance: MYCOPHENOLATE SODIUM
     Dosage: 2 DOSAGE FORM, QD (360 MG)
     Route: 048
     Dates: start: 20220703

REACTIONS (4)
  - Kidney transplant rejection [Not Recovered/Not Resolved]
  - Proteinuria [Unknown]
  - Blood urea increased [Unknown]
  - Product use issue [Unknown]

NARRATIVE: CASE EVENT DATE: 20201028
